FAERS Safety Report 16117466 (Version 1)
Quarter: 2019Q1

REPORT INFORMATION
  Report Type: Spontaneous
  Country: US (occurrence: US)
  Receive Date: 20190326
  Receipt Date: 20190326
  Transmission Date: 20190418
  Serious: No
  Sender: FDA-Public Use
  Company Number: US-009507513-1903USA007833

PATIENT
  Age: 64 Year
  Sex: Male

DRUGS (10)
  1. AMANTADINE. [Suspect]
     Active Substance: AMANTADINE HYDROCHLORIDE
     Dosage: 68.5 MILLIGRAM, 1X/DAY AT BEDTIME
     Route: 048
     Dates: start: 20190125, end: 20190206
  2. HYDROXYUREA. [Concomitant]
     Active Substance: HYDROXYUREA
     Dosage: UNK
  3. POTASSIUM CHLORIDE. [Concomitant]
     Active Substance: POTASSIUM CHLORIDE
     Dosage: UNK
  4. SINEMET [Suspect]
     Active Substance: CARBIDOPA\LEVODOPA
     Indication: DYSKINESIA
     Dosage: UNK
     Route: 048
  5. IRON (UNSPECIFIED) [Concomitant]
     Active Substance: IRON
     Dosage: UNK
  6. HYDROXYZINE HYDROCHLORIDE. [Concomitant]
     Active Substance: HYDROXYZINE HYDROCHLORIDE
     Dosage: UNK
  7. SINEMET [Suspect]
     Active Substance: CARBIDOPA\LEVODOPA
     Indication: PARKINSON^S DISEASE
  8. AMANTADINE. [Suspect]
     Active Substance: AMANTADINE HYDROCHLORIDE
     Dosage: 68.5 MILLIGRAM, 1X/DAY AT BEDTIME
     Route: 048
     Dates: start: 201902
  9. ONDANSETRON [Concomitant]
     Active Substance: ONDANSETRON
  10. HYDROCHLOROTHIAZIDE. [Concomitant]
     Active Substance: HYDROCHLOROTHIAZIDE
     Dosage: UNK

REACTIONS (7)
  - Unevaluable event [Unknown]
  - Dyspnoea [Not Recovered/Not Resolved]
  - Respiration abnormal [Unknown]
  - Upper respiratory tract congestion [Not Recovered/Not Resolved]
  - Constipation [Unknown]
  - Skin odour abnormal [Unknown]
  - Hot flush [Unknown]

NARRATIVE: CASE EVENT DATE: 2019
